FAERS Safety Report 26036063 (Version 3)
Quarter: 2025Q4

REPORT INFORMATION
  Report Type: Spontaneous
  Country: JP (occurrence: JP)
  Receive Date: 20251112
  Receipt Date: 20251223
  Transmission Date: 20260118
  Serious: Yes (Hospitalization, Other)
  Sender: ELI LILLY AND COMPANY
  Company Number: JP-ELI_LILLY_AND_COMPANY-JP202511011155

PATIENT
  Age: 43 Year
  Sex: Male
  Weight: 94 kg

DRUGS (11)
  1. MOUNJARO [Suspect]
     Active Substance: TIRZEPATIDE
     Indication: Type 2 diabetes mellitus
     Dosage: 2.5 MG
     Route: 058
     Dates: start: 20230529, end: 20231120
  2. MOUNJARO [Suspect]
     Active Substance: TIRZEPATIDE
     Dosage: 5 MG
     Route: 058
     Dates: start: 20231121, end: 20240831
  3. CARVEDILOL [Concomitant]
     Active Substance: CARVEDILOL
     Indication: Hypertension
     Dosage: 2.5 MG, BID
     Route: 048
     Dates: start: 20231117, end: 20250218
  4. CALTAN [Concomitant]
     Active Substance: CALCIUM CARBONATE
     Indication: Hyperphosphataemia
     Dosage: 500 MG, BID
     Route: 048
     Dates: start: 20240528
  5. NIFEDIPINE [Concomitant]
     Active Substance: NIFEDIPINE
     Indication: Hypertension
     Dosage: 20 MG, DAILY
     Route: 048
     Dates: start: 20240305, end: 20250204
  6. AZILSARTAN KAMEDOXOMIL [Concomitant]
     Active Substance: AZILSARTAN KAMEDOXOMIL
     Indication: Hypertension
     Dosage: 10 MG, DAILY
     Route: 048
     Dates: start: 20240305, end: 20250308
  7. EVOCALCET [Concomitant]
     Active Substance: EVOCALCET
     Indication: Hyperparathyroidism
     Dosage: 1 MG, DAILY
     Route: 048
     Dates: start: 20240220
  8. ONEALFA [Concomitant]
     Active Substance: ALFACALCIDOL
     Indication: Hypocalcaemia
     Dosage: 0.5 UG, DAILY
     Route: 048
     Dates: start: 20231117
  9. FEXOFENADINE HYDROCHLORIDE [Concomitant]
     Active Substance: FEXOFENADINE HYDROCHLORIDE
     Indication: Hypersensitivity
     Dosage: 60 MG, DAILY
     Route: 048
     Dates: start: 20231117
  10. SENNOSIDES [Concomitant]
     Active Substance: SENNOSIDES
     Dosage: 12 MG
     Dates: start: 20250121
  11. NALFURAFINE HYDROCHLORIDE [Concomitant]
     Active Substance: NALFURAFINE HYDROCHLORIDE
     Dosage: 2.5 UG
     Route: 048
     Dates: start: 20241117

REACTIONS (18)
  - Enteritis [Recovered/Resolved]
  - Gastroenteritis [Recovered/Resolved]
  - Gastroenteritis [Recovering/Resolving]
  - Loss of consciousness [Recovering/Resolving]
  - Facial paralysis [Recovered/Resolved]
  - Vitreous haemorrhage [Unknown]
  - Ileus paralytic [Recovered/Resolved]
  - Blood pressure decreased [Recovering/Resolving]
  - Blood pressure decreased [Recovered/Resolved]
  - Blood pressure decreased [Recovered/Resolved]
  - Blood pressure decreased [Recovering/Resolving]
  - Diarrhoea [Recovered/Resolved]
  - Ventricular extrasystoles [Recovering/Resolving]
  - Off label use [Unknown]
  - Gastrointestinal mucosa hyperaemia [Unknown]
  - Large intestine polyp [Unknown]
  - Diarrhoea [Recovering/Resolving]
  - Dehydration [Unknown]

NARRATIVE: CASE EVENT DATE: 20240101
